FAERS Safety Report 25063475 (Version 1)
Quarter: 2025Q1

REPORT INFORMATION
  Report Type: Spontaneous
  Country: US (occurrence: None)
  Receive Date: 20250310
  Receipt Date: 20250310
  Transmission Date: 20250409
  Serious: Yes (Hospitalization)
  Sender: FDA-CTU
  Company Number: None

PATIENT
  Age: 65 Year
  Sex: Male
  Weight: 64 kg

DRUGS (1)
  1. ELIQUIS [Suspect]
     Active Substance: APIXABAN
     Indication: Deep vein thrombosis
     Dosage: 1.00 UNK - UNKNOWN TWICE A DAY ORAL?
     Route: 048

REACTIONS (4)
  - Haemorrhage [None]
  - Melaena [None]
  - Fall [None]
  - Haemoglobin decreased [None]

NARRATIVE: CASE EVENT DATE: 20240828
